FAERS Safety Report 5154335-8 (Version None)
Quarter: 2006Q4

REPORT INFORMATION
  Report Type: 
  Country: None (occurrence: None)
  Receive Date: 20061114
  Receipt Date: 20061031
  Transmission Date: 20070319
  Serious: Yes (Other)
  Sender: FDA-Public Use
  Company Number: 2006136368

PATIENT
  Sex: Female

DRUGS (5)
  1. HALCION [Suspect]
     Indication: BORDERLINE PERSONALITY DISORDER
     Dates: start: 20060501
  2. CLONAZEPAM [Suspect]
     Indication: BORDERLINE PERSONALITY DISORDER
  3. LEVOTOMIN (LEVOMEPROMAZINE MALEATE) [Suspect]
     Indication: BORDERLINE PERSONALITY DISORDER
     Dates: start: 20060501
  4. MOHRUS (KETOPROFEN) [Concomitant]
  5. CALONAL (PARACETAMOL) [Concomitant]

REACTIONS (2)
  - CAESAREAN SECTION [None]
  - DRUG EXPOSURE DURING PREGNANCY [None]
